FAERS Safety Report 5006646-4 (Version None)
Quarter: 2006Q2

REPORT INFORMATION
  Report Type: 
  Country: None (occurrence: None)
  Receive Date: 20060519
  Receipt Date: 20060512
  Transmission Date: 20061013
  Serious: Yes (Hospitalization)
  Sender: FDA-Public Use
  Company Number: US-JNJFOC-20060402661

PATIENT
  Sex: Male

DRUGS (28)
  1. DURAGESIC-100 [Suspect]
     Route: 062
  2. DURAGESIC-100 [Suspect]
     Route: 062
  3. DURAGESIC-100 [Suspect]
     Route: 062
  4. UROCRIT-K [Concomitant]
     Route: 048
  5. NEURONTIN [Concomitant]
     Route: 048
  6. CHROMAGEN [Concomitant]
     Route: 048
  7. CHROMAGEN [Concomitant]
     Route: 048
  8. CHROMAGEN [Concomitant]
     Route: 048
  9. CHROMAGEN [Concomitant]
     Route: 048
  10. CYMBALTA [Concomitant]
     Route: 048
  11. ZOCOR [Concomitant]
     Route: 048
  12. KETOPROFEN [Concomitant]
     Route: 048
  13. SINEMET [Concomitant]
     Route: 048
  14. SINEMET [Concomitant]
     Indication: PARKINSON'S DISEASE
     Dosage: CARBIDOPA 25MG/LEVODOPA 100MG, 2 TABLETS TID; CARBIDOPA 50 MG/LEVODOPA 200MG, 1 TABLET HS, ORAL
     Route: 048
  15. ASPIRIN [Concomitant]
     Route: 048
  16. TYLENOL (CAPLET) [Concomitant]
     Route: 048
  17. ZOSTRIX HP [Concomitant]
     Route: 048
  18. MULTI-VITAMIN [Concomitant]
     Route: 048
  19. MULTI-VITAMIN [Concomitant]
     Route: 048
  20. MULTI-VITAMIN [Concomitant]
     Route: 048
  21. MULTI-VITAMIN [Concomitant]
     Route: 048
  22. MULTI-VITAMIN [Concomitant]
     Route: 048
  23. MULTI-VITAMIN [Concomitant]
     Route: 048
  24. MULTI-VITAMIN [Concomitant]
     Route: 048
  25. MULTI-VITAMIN [Concomitant]
     Route: 048
  26. REQUIP [Concomitant]
     Indication: PARKINSON'S DISEASE
     Route: 048
  27. PERCOCET [Concomitant]
     Route: 048
  28. PERCOCET [Concomitant]
     Indication: PAIN
     Dosage: 10 MG OXYCODONE/325 MG ACETAMINOPHEEN, ONE EVERY FOUR TO SIX HOURS AS NEEDED, ORAL
     Route: 048

REACTIONS (8)
  - ANAEMIA [None]
  - DYSPNOEA [None]
  - HYPOTENSION [None]
  - HYPOVOLAEMIA [None]
  - INCORRECT DOSE ADMINISTERED [None]
  - PAIN [None]
  - THERAPEUTIC RESPONSE DECREASED [None]
  - TREATMENT NONCOMPLIANCE [None]
